FAERS Safety Report 18750585 (Version 1)
Quarter: 2021Q1

REPORT INFORMATION
  Report Type: Spontaneous
  Country: US (occurrence: US)
  Receive Date: 20210118
  Receipt Date: 20210118
  Transmission Date: 20210419
  Serious: Yes (Death)
  Sender: FDA-Public Use
  Company Number: US-STRIDES ARCOLAB LIMITED-2021SP000772

PATIENT

DRUGS (2)
  1. RANITIDINE. [Suspect]
     Active Substance: RANITIDINE
     Indication: PRODUCT USED FOR UNKNOWN INDICATION
     Dosage: RANITIDINE
     Route: 065
     Dates: start: 201501, end: 201609
  2. RANITIDINE. [Suspect]
     Active Substance: RANITIDINE
     Dosage: ZANTAC
     Route: 065
     Dates: start: 201501, end: 201609

REACTIONS (3)
  - Nasal cavity cancer [Fatal]
  - Throat cancer [Fatal]
  - Oesophageal carcinoma [Fatal]

NARRATIVE: CASE EVENT DATE: 20180801
